FAERS Safety Report 22361910 (Version 3)
Quarter: 2024Q4

REPORT INFORMATION
  Report Type: Spontaneous
  Country: US (occurrence: US)
  Receive Date: 20230524
  Receipt Date: 20241118
  Transmission Date: 20250115
  Serious: Yes (Other)
  Sender: BIOMARIN
  Company Number: US-SA-SAC20230518000755

PATIENT

DRUGS (1)
  1. LARONIDASE [Suspect]
     Active Substance: LARONIDASE
     Indication: Mucopolysaccharidosis I
     Dosage: 46.4 (UNITS NOT PROVIEDED), QW
     Route: 042
     Dates: start: 20030611

REACTIONS (3)
  - Cataract [Not Recovered/Not Resolved]
  - Desmoid tumour [Unknown]
  - Fatigue [Unknown]

NARRATIVE: CASE EVENT DATE: 20230101
